FAERS Safety Report 12144138 (Version 1)
Quarter: 2016Q1

REPORT INFORMATION
  Report Type: Report from Study
  Country: US (occurrence: US)
  Receive Date: 20160304
  Receipt Date: 20160304
  Transmission Date: 20160526
  Serious: Yes (Other)
  Sender: FDA-Public Use
  Company Number: US-UCBSA-2016007011

PATIENT
  Age: 26 Year
  Sex: Female
  Weight: 88 kg

DRUGS (17)
  1. LORATADINE. [Concomitant]
     Active Substance: LORATADINE
     Indication: PRODUCT USED FOR UNKNOWN INDICATION
     Dosage: 1 DF, ONCE DAILY (QD)
     Route: 048
     Dates: start: 20140913, end: 20140914
  2. CHILDREN CLARITIN ALLERGY [Concomitant]
     Active Substance: LORATADINE
     Indication: PRODUCT USED FOR UNKNOWN INDICATION
     Dosage: 1 DF, ONCE DAILY (QD)
     Route: 048
     Dates: start: 20140328, end: 20140330
  3. LIDOCAINE. [Concomitant]
     Active Substance: LIDOCAINE
     Indication: ASPIRATION
     Dosage: 7 ML, ONCE DAILY (QD)
     Dates: start: 20140418, end: 20140418
  4. CERTOLIZUMAB PEGOL RA [Suspect]
     Active Substance: CERTOLIZUMAB PEGOL
     Indication: RHEUMATOID ARTHRITIS
     Dosage: 200 MG,
     Dates: start: 20140429, end: 20141018
  5. PHENERGAN [Concomitant]
     Active Substance: PROMETHAZINE HYDROCHLORIDE
     Indication: NAUSEA
     Dosage: 2 DF, ONCE DAILY (QD)
     Route: 048
     Dates: start: 20140714, end: 20140714
  6. PREDNISONE. [Concomitant]
     Active Substance: PREDNISONE
     Indication: ARTHRITIS REACTIVE
     Dosage: 10 MG, ONCE DAILY (QD)
     Route: 048
     Dates: start: 20140915, end: 20140919
  7. PREDNISONE. [Concomitant]
     Active Substance: PREDNISONE
     Dosage: 5 MG, ONCE DAILY (QD)
     Route: 048
     Dates: start: 20140920, end: 20140923
  8. ARISTOSPAN [Concomitant]
     Active Substance: TRIAMCINOLONE HEXACETONIDE
     Indication: ASPIRATION
     Dosage: 40 MG, ONCE DAILY (QD)
     Dates: start: 20140418, end: 20140418
  9. ONE A DAY [Concomitant]
     Indication: PRODUCT USED FOR UNKNOWN INDICATION
     Dosage: 1 DF, ONCE DAILY (QD)
     Route: 048
     Dates: start: 20140221, end: 20140516
  10. CHILDREN CLARITIN ALLERGY [Concomitant]
     Active Substance: LORATADINE
     Dosage: 1 DF, ONCE DAILY (QD)
     Route: 048
     Dates: start: 20140913, end: 20140914
  11. DHA [Concomitant]
     Active Substance: DIETARY SUPPLEMENT
     Indication: PRODUCT USED FOR UNKNOWN INDICATION
     Dosage: 1 DF, ONCE DAILY (QD)
     Route: 048
     Dates: start: 20140904, end: 20141106
  12. PHENERGAN [Concomitant]
     Active Substance: PROMETHAZINE HYDROCHLORIDE
     Dosage: 1 DF, ONCE DAILY (QD)
     Route: 048
     Dates: start: 20140919, end: 20140925
  13. ARISTOSPAN [Concomitant]
     Active Substance: TRIAMCINOLONE HEXACETONIDE
     Dosage: 40 MG, ONCE DAILY (QD)
     Dates: start: 20140428, end: 20140428
  14. CLARITIN [Concomitant]
     Active Substance: LORATADINE
     Indication: SINUS HEADACHE
     Dosage: 1 DF, ONCE DAILY (QD)
     Route: 048
     Dates: start: 20140712, end: 20140712
  15. BACTRIM [Concomitant]
     Active Substance: SULFAMETHOXAZOLE\TRIMETHOPRIM
     Indication: KIDNEY INFECTION
     Dosage: 2 DF, ONCE DAILY (QD)
     Route: 048
     Dates: start: 20140328, end: 20140407
  16. LORATADINE AND PSEUDOEPHEDRINE SULFATE [Concomitant]
     Active Substance: LORATADINE\PSEUDOEPHEDRINE SULFATE
     Indication: HYPERSENSITIVITY
     Dosage: 1 DF, ONCE DAILY (QD)
     Route: 048
     Dates: start: 20140416, end: 20140416
  17. LIDOCAINE. [Concomitant]
     Active Substance: LIDOCAINE
     Dosage: 7 ML, ONCE DAILY (QD)
     Dates: start: 20140428, end: 201404

REACTIONS (3)
  - Exposure during pregnancy [Unknown]
  - Abdominal pain [Recovered/Resolved]
  - Premature delivery [Unknown]

NARRATIVE: CASE EVENT DATE: 20140429
